FAERS Safety Report 8201572-1 (Version None)
Quarter: 2012Q1

REPORT INFORMATION
  Report Type: 
  Country: None (occurrence: None)
  Receive Date: 20120312
  Receipt Date: 20120301
  Transmission Date: 20120608
  Serious: Yes (Death, Hospitalization)
  Sender: FDA-Public Use
  Company Number: JP-TEVA-2011002044

PATIENT
  Sex: Female
  Weight: 52 kg

DRUGS (24)
  1. CALCIUM POLYSTYRENE SULFONATE [Concomitant]
     Dates: start: 20110122
  2. VERAPAMIL HYDROCHLOIRDE [Concomitant]
     Dates: start: 20110224, end: 20110224
  3. BENDAMUSTINE [Suspect]
     Indication: B-CELL LYMPHOMA
     Dosage: 120 MG/M2;
     Route: 042
     Dates: start: 20110118, end: 20110119
  4. DEXAMETHASONE [Concomitant]
  5. HYDROCORTISONE BUTYRATE [Concomitant]
     Dates: start: 20110119
  6. REBAMIPIDE [Concomitant]
  7. DIGOXIN [Concomitant]
     Dates: start: 20110224, end: 20110428
  8. VALACYCLOVIR HYDROCHLORIDE [Concomitant]
  9. BROTIZOLAM [Concomitant]
     Dates: end: 20110319
  10. HEPARIN [Concomitant]
  11. SODIUM PICOSULFATE [Concomitant]
  12. VALACYCLOVIR HYDROCHLORIDE [Concomitant]
  13. TRIMETHOPRIM + SULFAMETHOXAZOLE [Concomitant]
  14. GRANISETRON HCL [Concomitant]
     Dates: start: 20110118
  15. CEFAZOLIN [Concomitant]
     Dates: start: 20110308, end: 20110408
  16. PENTAMIDINE [Concomitant]
     Dates: start: 20110402, end: 20110402
  17. VALACYCLOVIR HYDROCHLORIDE [Concomitant]
  18. BENDAMUSTINE [Suspect]
     Route: 042
     Dates: start: 20110302, end: 20110303
  19. OXYCODONE HCL [Suspect]
     Dates: start: 20110216, end: 20110428
  20. MAGNESIUM OXIDE [Concomitant]
     Dates: start: 20110119
  21. FLUCONAZOLE [Concomitant]
     Dates: start: 20110402, end: 20110428
  22. OXYCODONE HCL [Suspect]
     Indication: CANCER PAIN
  23. OMEPRAZOLE [Concomitant]
     Dates: end: 20110428
  24. PREDNISOLONE [Concomitant]
     Dates: start: 20110216, end: 20110428

REACTIONS (8)
  - PLATELET COUNT DECREASED [None]
  - DISEASE PROGRESSION [None]
  - LYMPHOPENIA [None]
  - NEUTROPENIA [None]
  - B-CELL LYMPHOMA [None]
  - LYMPHOCYTE COUNT DECREASED [None]
  - LYMPHOMA [None]
  - NEUTROPHIL COUNT DECREASED [None]
